FAERS Safety Report 15663880 (Version 1)
Quarter: 2018Q4

REPORT INFORMATION
  Report Type: Spontaneous
  Country: CZ (occurrence: CZ)
  Receive Date: 20181128
  Receipt Date: 20181128
  Transmission Date: 20190205
  Serious: Yes (Hospitalization)
  Sender: FDA-Public Use
  Company Number: CZ-ROCHE-2217370

PATIENT
  Sex: Female

DRUGS (8)
  1. CYCLOPHOSPHAMIDE. [Suspect]
     Active Substance: CYCLOPHOSPHAMIDE
     Indication: PRODUCT USED FOR UNKNOWN INDICATION
     Route: 065
  2. MABTHERA [Suspect]
     Active Substance: RITUXIMAB
     Indication: HAEMORRHAGE
     Dosage: 375 MG/M2, UNK 1,8,15, 22ND DAY
     Route: 065
  3. AZATHIOPRINE. [Suspect]
     Active Substance: AZATHIOPRINE
     Indication: ABDOMINAL WALL HAEMATOMA
     Route: 065
  4. PREDNISONE. [Suspect]
     Active Substance: PREDNISONE
     Dosage: 10 MG, UNK
     Route: 065
  5. PREDNISONE. [Suspect]
     Active Substance: PREDNISONE
     Dosage: 1 MG/KG, UNK
     Route: 065
  6. CICLOSPORIN [Suspect]
     Active Substance: CYCLOSPORINE
     Indication: HAEMATURIA
     Route: 065
     Dates: start: 201404
  7. CICLOSPORIN [Suspect]
     Active Substance: CYCLOSPORINE
     Dosage: 1,9-2,1 ML
     Route: 065
  8. PREDNISONE. [Suspect]
     Active Substance: PREDNISONE
     Indication: ABDOMINAL WALL HAEMATOMA
     Route: 065
     Dates: start: 201401

REACTIONS (10)
  - Haematoma [Unknown]
  - Haematuria [Unknown]
  - Compartment syndrome [Unknown]
  - Glucose tolerance impaired [Unknown]
  - Drug hypersensitivity [Unknown]
  - Conjunctival hyperaemia [Unknown]
  - Product use in unapproved indication [Unknown]
  - Off label use [Unknown]
  - Epilepsy [Unknown]
  - Haemorrhage [Unknown]

NARRATIVE: CASE EVENT DATE: 201404
